FAERS Safety Report 23633764 (Version 3)
Quarter: 2025Q3

REPORT INFORMATION
  Report Type: Report from Study
  Country: US (occurrence: None)
  Receive Date: 20240314
  Receipt Date: 20250909
  Transmission Date: 20251021
  Serious: No
  Sender: INCYTE
  Company Number: US-INCYTE CORPORATION-2024IN001383

PATIENT
  Age: 51 Year

DRUGS (4)
  1. JAKAFI [Suspect]
     Active Substance: RUXOLITINIB
     Indication: Essential thrombocythaemia
     Route: 065
  2. JAKAFI [Suspect]
     Active Substance: RUXOLITINIB
     Route: 065
  3. JAKAFI [Suspect]
     Active Substance: RUXOLITINIB
     Route: 065
  4. HYDROXYUREA [Concomitant]
     Active Substance: HYDROXYUREA
     Indication: Product used for unknown indication
     Route: 065

REACTIONS (3)
  - Fatigue [Unknown]
  - Off label use [Unknown]
  - Drug ineffective for unapproved indication [Unknown]
